FAERS Safety Report 5411487-X (Version None)
Quarter: 2007Q3

REPORT INFORMATION
  Report Type: 
  Country: None (occurrence: None)
  Receive Date: 20070810
  Receipt Date: 20070803
  Transmission Date: 20080115
  Serious: Yes (Hospitalization)
  Sender: FDA-Public Use
  Company Number: JP-SHR-JP-2007-029057

PATIENT
  Age: 33 Year
  Sex: Female

DRUGS (2)
  1. BETAFERON [Suspect]
     Indication: RELAPSING-REMITTING MULTIPLE SCLEROSIS
     Dosage: 8 MIU, EVERY 2D
     Route: 058
  2. PREDNISOLONE [Concomitant]

REACTIONS (4)
  - MYELOPATHY [None]
  - PARAPARESIS [None]
  - SYSTEMIC LUPUS ERYTHEMATOSUS [None]
  - URINARY INCONTINENCE [None]
